FAERS Safety Report 9002924 (Version 1)
Quarter: 2013Q1

REPORT INFORMATION
  Report Type: Spontaneous
  Country: US (occurrence: US)
  Receive Date: 20130108
  Receipt Date: 20130108
  Transmission Date: 20140127
  Serious: Yes (Other)
  Sender: FDA-Public Use
  Company Number: US-PFIZER INC-2013006722

PATIENT
  Sex: Male

DRUGS (4)
  1. NORVASC [Suspect]
     Dosage: UNK
  2. NEURONTIN [Suspect]
     Dosage: UNK
  3. GLUCOTROL XL [Suspect]
     Dosage: UNK
  4. DILANTIN [Suspect]
     Dosage: UNK

REACTIONS (1)
  - Cerebrovascular accident [Unknown]
